FAERS Safety Report 5906076-4 (Version None)
Quarter: 2008Q4

REPORT INFORMATION
  Report Type: 
  Country: None (occurrence: None)
  Receive Date: 20081002
  Receipt Date: 20080923
  Transmission Date: 20090506
  Serious: Yes (Other)
  Sender: FDA-Public Use
  Company Number: PHHY2008DK22751

PATIENT
  Age: 69 Year
  Sex: Male

DRUGS (2)
  1. EXELON [Suspect]
     Indication: DEMENTIA WITH LEWY BODIES
     Dosage: 9.5 MG/24 HR
     Route: 062
     Dates: start: 20080101
  2. EXELON [Suspect]
     Dosage: 2 X 9.5 MG/24HR
     Route: 062

REACTIONS (2)
  - INCORRECT DOSE ADMINISTERED [None]
  - JAUNDICE [None]
